FAERS Safety Report 12746121 (Version 1)
Quarter: 2016Q3

REPORT INFORMATION
  Report Type: Spontaneous
  Country: US (occurrence: US)
  Receive Date: 20160914
  Receipt Date: 20160914
  Transmission Date: 20161109
  Serious: Yes (Life-Threatening, Hospitalization)
  Sender: FDA-Public Use
  Company Number: None

PATIENT
  Age: 68 Year
  Sex: Female
  Weight: 50.4 kg

DRUGS (7)
  1. ELIQUIS [Suspect]
     Active Substance: APIXABAN
     Indication: THROMBOSIS PROPHYLAXIS
     Route: 048
     Dates: start: 20160428, end: 20160429
  2. VITAMIN D [Concomitant]
     Active Substance: CHOLECALCIFEROL
  3. DUAL CHAMBER PACEMAKER [Concomitant]
  4. CALCIUM [Concomitant]
     Active Substance: CALCIUM
  5. ELIQUIS [Suspect]
     Active Substance: APIXABAN
     Indication: ATRIAL FIBRILLATION
     Route: 048
     Dates: start: 20160428, end: 20160429
  6. ASA [Concomitant]
     Active Substance: ASPIRIN
  7. MULTIVITAMIN [Concomitant]
     Active Substance: VITAMINS

REACTIONS (7)
  - Blood pressure decreased [None]
  - Urinary tract infection [None]
  - Disorientation [None]
  - Device related infection [None]
  - Dyspnoea [None]
  - Haemothorax [None]
  - Respiratory distress [None]

NARRATIVE: CASE EVENT DATE: 20160429
